FAERS Safety Report 11364223 (Version 3)
Quarter: 2015Q4

REPORT INFORMATION
  Report Type: Spontaneous
  Country: JP (occurrence: JP)
  Receive Date: 20150811
  Receipt Date: 20151001
  Transmission Date: 20160304
  Serious: Yes (Disabling, Other)
  Sender: FDA-Public Use
  Company Number: JP-JNJFOC-20150804897

PATIENT
  Age: 83 Year
  Sex: Female

DRUGS (6)
  1. REMINYL [Suspect]
     Active Substance: GALANTAMINE
     Indication: DEMENTIA
     Route: 048
     Dates: start: 20141205, end: 20150108
  2. REMINYL [Suspect]
     Active Substance: GALANTAMINE
     Indication: DEMENTIA
     Route: 048
     Dates: start: 20141121, end: 20141204
  3. REMINYL [Suspect]
     Active Substance: GALANTAMINE
     Indication: DEMENTIA
     Route: 048
     Dates: start: 20150109, end: 20150501
  4. DEZOLAM [Concomitant]
     Active Substance: ETIZOLAM
     Indication: RESTLESSNESS
     Route: 048
     Dates: start: 20141121, end: 20150123
  5. EURODIN [Concomitant]
     Active Substance: ESTAZOLAM
     Indication: INSOMNIA
     Route: 048
     Dates: start: 20141027, end: 20150501
  6. ZOLPIDEM TARTRATE. [Concomitant]
     Active Substance: ZOLPIDEM TARTRATE
     Indication: INSOMNIA
     Route: 048
     Dates: start: 20141121, end: 20150501

REACTIONS (8)
  - Meniere^s disease [Unknown]
  - Tinnitus [Recovered/Resolved with Sequelae]
  - Malaise [Unknown]
  - Headache [Unknown]
  - Insomnia [Unknown]
  - Thirst [Unknown]
  - Hypoaesthesia [Recovered/Resolved with Sequelae]
  - Dizziness [Unknown]

NARRATIVE: CASE EVENT DATE: 201503
